FAERS Safety Report 4624175-4 (Version None)
Quarter: 2005Q1

REPORT INFORMATION
  Report Type: 
  Country: None (occurrence: None)
  Receive Date: 20050331
  Receipt Date: 20050322
  Transmission Date: 20050727
  Serious: Yes (Other)
  Sender: FDA-Public Use
  Company Number: GB-GLAXOSMITHKLINE-B0375671A

PATIENT
  Age: 84 Year
  Sex: Female
  Weight: 64.86 kg

DRUGS (2)
  1. AVODART [Suspect]
     Indication: INCONTINENCE
     Dosage: .5MG TWICE PER DAY
     Route: 048
     Dates: start: 20050301
  2. ASPIRIN [Concomitant]
     Dosage: 75MG PER DAY
     Route: 048
     Dates: start: 19800101

REACTIONS (2)
  - DIZZINESS [None]
  - VISUAL DISTURBANCE [None]
